FAERS Safety Report 8771974 (Version 1)
Quarter: 2012Q4

REPORT INFORMATION
  Report Type: 
  Country: US (occurrence: US)
  Receive Date: 20120906
  Receipt Date: 20120906
  Transmission Date: 20130627
  Serious: No
  Sender: FDA-Public Use
  Company Number: US-009507513-1208USA009901

PATIENT

DRUGS (1)
  1. CLARITIN-D 12 HOUR [Suspect]
     Indication: RESPIRATORY TRACT CONGESTION
     Dosage: 10 mg, Unknown
     Route: 048
     Dates: start: 201208

REACTIONS (2)
  - Rash papular [Unknown]
  - Rash pruritic [Unknown]
